FAERS Safety Report 7993446-6 (Version None)
Quarter: 2011Q4

REPORT INFORMATION
  Report Type: 
  Country: None (occurrence: None)
  Receive Date: 20111219
  Receipt Date: 20110804
  Transmission Date: 20120403
  Serious: No
  Sender: FDA-Public Use
  Company Number: US-ASTRAZENECA-2009UW12976

PATIENT
  Age: 55 Year
  Sex: Female
  Weight: 81.2 kg

DRUGS (2)
  1. CRESTOR [Suspect]
     Indication: BLOOD CHOLESTEROL ABNORMAL
     Route: 048
  2. ASPIRIN [Concomitant]

REACTIONS (5)
  - DIZZINESS [None]
  - MUSCULAR WEAKNESS [None]
  - NERVE COMPRESSION [None]
  - ASTHENIA [None]
  - HEAD DISCOMFORT [None]
